FAERS Safety Report 21548041 (Version 5)
Quarter: 2023Q1

REPORT INFORMATION
  Report Type: Report from Study
  Country: US (occurrence: US)
  Receive Date: 20221103
  Receipt Date: 20230307
  Transmission Date: 20230417
  Serious: Yes (Hospitalization, Other)
  Sender: FDA-Public Use
  Company Number: US-TAKEDA-2022TUS072902

PATIENT
  Age: 4 Year
  Sex: Male
  Weight: 23 kg

DRUGS (3)
  1. MARIBAVIR [Suspect]
     Active Substance: MARIBAVIR
     Indication: Cytomegalovirus infection
     Dosage: 200 MILLIGRAM, TID
     Route: 048
     Dates: start: 20221012
  2. MARIBAVIR [Suspect]
     Active Substance: MARIBAVIR
     Dosage: 200 MILLIGRAM, TID
     Route: 048
     Dates: start: 20221012
  3. MARIBAVIR [Suspect]
     Active Substance: MARIBAVIR
     Dosage: 200 MILLIGRAM, TID
     Route: 048
     Dates: start: 20221012

REACTIONS (3)
  - Pneumonia [Unknown]
  - Drug ineffective [Unknown]
  - Off label use [Unknown]

NARRATIVE: CASE EVENT DATE: 20221012
